FAERS Safety Report 5854188-6 (Version None)
Quarter: 2008Q3

REPORT INFORMATION
  Report Type: 
  Country: None (occurrence: None)
  Receive Date: 20080822
  Receipt Date: 20080821
  Transmission Date: 20090109
  Serious: Yes (Hospitalization, Other)
  Sender: FDA-Public Use
  Company Number: HK-BRISTOL-MYERS SQUIBB COMPANY-14189237

PATIENT
  Age: 20 Year
  Sex: Female

DRUGS (8)
  1. ABATACEPT [Suspect]
     Indication: SYSTEMIC LUPUS ERYTHEMATOSUS
     Route: 042
     Dates: start: 20080508, end: 20080508
  2. PREDNISOLONE [Concomitant]
     Indication: SYSTEMIC LUPUS ERYTHEMATOSUS
     Dosage: STARTED ON 13MAY02-20 MG, TID, PO 08OCT07 TO 15JAN08-15MG, QD, PO 16JAN08 TO 15APR08-20MG, QD, PO
     Route: 048
     Dates: start: 20020513
  3. MYCOPHENOLATE MOFETIL [Concomitant]
     Indication: SYSTEMIC LUPUS ERYTHEMATOSUS
     Dosage: 1500MG-16APR08-22APR08, QD;500MG-27JUL07-15APR08, BID;1000MG-180CT06-26JUL07, BID
     Route: 048
     Dates: start: 20061018
  4. MYCOPHENOLATE MOFETIL [Concomitant]
     Indication: LUPUS NEPHRITIS
     Dosage: 1500MG-16APR08-22APR08, QD;500MG-27JUL07-15APR08, BID;1000MG-180CT06-26JUL07, BID
     Route: 048
     Dates: start: 20061018
  5. MYCOPHENOLATE MOFETIL [Concomitant]
     Indication: LUPUS ENCEPHALITIS
     Dosage: 1500MG-16APR08-22APR08, QD;500MG-27JUL07-15APR08, BID;1000MG-180CT06-26JUL07, BID
     Route: 048
     Dates: start: 20061018
  6. FAMOTIDINE [Concomitant]
     Indication: PROPHYLAXIS AGAINST GASTROINTESTINAL ULCER
     Dosage: 14MAR08-27APR08-20MG-QD-ORAL 28APR08-08MAY08-20MG-BID-ORAL
     Route: 048
     Dates: start: 20080314, end: 20080508
  7. CARBAMAZEPINE [Concomitant]
     Indication: EPILEPSY
     Dosage: 18OCT06-CON1250MG,ORAL,BID;22AUG07-27MAR08,ORAL,BID,400MG
     Route: 048
     Dates: start: 20080328
  8. CALCIUM CARBONATE [Concomitant]
     Indication: MINERAL SUPPLEMENTATION
     Dates: start: 20061018

REACTIONS (3)
  - ANAEMIA [None]
  - EPILEPSY [None]
  - GASTRIC ULCER [None]
